FAERS Safety Report 6050046-5 (Version None)
Quarter: 2009Q1

REPORT INFORMATION
  Report Type: 
  Country: None (occurrence: None)
  Receive Date: 20090126
  Receipt Date: 20090115
  Transmission Date: 20090719
  Serious: Yes (Other)
  Sender: FDA-Public Use
  Company Number: US-WYE-H07713009

PATIENT
  Sex: Female
  Weight: 56.75 kg

DRUGS (3)
  1. ADVIL PM [Suspect]
     Indication: INSOMNIA
     Dosage: 1 CAPLET 3 TO 4 NIGHTS PER WEEK
     Route: 048
     Dates: start: 20080101, end: 20081106
  2. VITAMIN B COMPLEX CAP [Concomitant]
     Dosage: UNKNOWN
     Route: 048
  3. COENZYME Q10 [Concomitant]
     Dosage: UNKNOWN
     Route: 048

REACTIONS (2)
  - DEAFNESS [None]
  - LABYRINTHITIS [None]
